FAERS Safety Report 5892149-1 (Version None)
Quarter: 2008Q3

REPORT INFORMATION
  Report Type: 
  Country: None (occurrence: None)
  Receive Date: 20080918
  Receipt Date: 20080909
  Transmission Date: 20090109
  Serious: Yes (Other)
  Sender: FDA-Public Use
  Company Number: 20156

PATIENT
  Age: 14 Year
  Sex: Male

DRUGS (7)
  1. ADRIAMYCIN PFS [Suspect]
     Indication: NEUROBLASTOMA
  2. ETOPOSIDE [Suspect]
     Indication: NEUROBLASTOMA
  3. VINBLASTINE SULFATE [Suspect]
     Indication: NEUROBLASTOMA
  4. VINCRISTINE [Suspect]
     Indication: NEUROBLASTOMA
  5. CYCLOPHOSPHAMIDE [Suspect]
     Indication: NEUROBLASTOMA
  6. IFOSFAMIDE [Suspect]
     Indication: NEUROBLASTOMA
  7. RADIOTHERAPY [Suspect]
     Indication: NEUROBLASTOMA

REACTIONS (5)
  - GANGLIONEUROMA [None]
  - METASTASES TO LIVER [None]
  - NEUROBLASTOMA [None]
  - RECURRENT CANCER [None]
  - RHABDOMYOSARCOMA [None]
